FAERS Safety Report 21979959 (Version 1)
Quarter: 2023Q1

REPORT INFORMATION
  Report Type: Report from Study
  Country: CO (occurrence: CO)
  Receive Date: 20230210
  Receipt Date: 20230210
  Transmission Date: 20230417
  Serious: Yes (Hospitalization)
  Sender: FDA-Public Use
  Company Number: CO-ALLERGAN-2303263US

PATIENT
  Sex: Female
  Weight: 82 kg

DRUGS (1)
  1. BOTULINUM TOXIN TYPE A [Suspect]
     Active Substance: BOTULINUM TOXIN TYPE A
     Indication: Facial spasm
     Dosage: 200 UNITS, SINGLE
     Route: 030

REACTIONS (7)
  - Cardiac disorder [Not Recovered/Not Resolved]
  - Stress [Recovering/Resolving]
  - Mental disorder [Recovering/Resolving]
  - Excessive eye blinking [Not Recovered/Not Resolved]
  - Lacrimation increased [Not Recovered/Not Resolved]
  - Facial spasm [Not Recovered/Not Resolved]
  - Blepharospasm [Not Recovered/Not Resolved]

NARRATIVE: CASE EVENT DATE: 20230110
